FAERS Safety Report 8827204 (Version 1)
Quarter: 2012Q4

REPORT INFORMATION
  Report Type: 
  Country: TW (occurrence: TW)
  Receive Date: 20121006
  Receipt Date: 20121006
  Transmission Date: 20130627
  Serious: Yes (Hospitalization, Other)
  Sender: FDA-Public Use
  Company Number: TW-PAR PHARMACEUTICAL, INC-2012SCPR004629

PATIENT

DRUGS (3)
  1. BUPROPION HCL XL [Suspect]
     Indication: PRODUCT USED FOR UNKNOWN INDICATION
     Dosage: 1-month prescription of 300 mg bupropion
     Route: 048
  2. VENLAFAXINE HYDROCHLORIDE [Suspect]
     Indication: PRODUCT USED FOR UNKNOWN INDICATION
     Dosage: 1 month prescription of venlafaxine
     Route: 048
  3. LORAZEPAM [Suspect]
     Indication: PRODUCT USED FOR UNKNOWN INDICATION
     Dosage: 1 month prescription of 3 mg lorazepam
     Route: 048

REACTIONS (8)
  - Central nervous system necrosis [Recovering/Resolving]
  - Cardiotoxicity [Recovering/Resolving]
  - Choreoathetosis [Not Recovered/Not Resolved]
  - Respiratory distress [Recovering/Resolving]
  - Serotonin syndrome [Unknown]
  - Suicide attempt [Unknown]
  - Overdose [Unknown]
  - Electrocardiogram QRS complex prolonged [Recovered/Resolved]
